FAERS Safety Report 12759527 (Version 2)
Quarter: 2019Q1

REPORT INFORMATION
  Report Type: Report from Study
  Country: CN (occurrence: CN)
  Receive Date: 20160919
  Receipt Date: 20190212
  Transmission Date: 20190417
  Serious: Yes (Hospitalization)
  Sender: FDA-Public Use
  Company Number: CN-PFIZER INC-2016425156

PATIENT
  Age: 50 Year
  Sex: Female
  Weight: 58 kg

DRUGS (4)
  1. CHIDAMIDE [Suspect]
     Active Substance: TUCIDINOSTAT
     Dosage: 30 MG, 2 TIMES EVEY 7 DAYS (CYCLE)
     Route: 048
     Dates: start: 20150825, end: 20150904
  2. AROMASIN [Suspect]
     Active Substance: EXEMESTANE
     Dosage: 25 MG, 1X/DAY (DAILY, CYCLE)
     Route: 048
     Dates: start: 20150825, end: 20150906
  3. AROMASIN [Suspect]
     Active Substance: EXEMESTANE
     Indication: BREAST CANCER
     Dosage: 25 MG, 1X/DAY (DAILY, CYCLE)
     Route: 048
     Dates: start: 20150821, end: 20150821
  4. CHIDAMIDE [Suspect]
     Active Substance: TUCIDINOSTAT
     Indication: BREAST CANCER
     Dosage: 30 MG, 1X/DAY (CYCLE)
     Route: 048
     Dates: start: 20150822, end: 20150822

REACTIONS (4)
  - Nausea [Recovered/Resolved]
  - Abdominal distension [Recovered/Resolved]
  - Abdominal pain [Recovered/Resolved]
  - Vomiting [Recovered/Resolved]

NARRATIVE: CASE EVENT DATE: 20150822
